FAERS Safety Report 7322907-8 (Version None)
Quarter: 2011Q1

REPORT INFORMATION
  Report Type: 
  Country: None (occurrence: None)
  Receive Date: 20110215
  Receipt Date: 20110209
  Transmission Date: 20110831
  Serious: Yes (Life-Threatening, Hospitalization)
  Sender: FDA-Public Use
  Company Number: 2011SP006361

PATIENT
  Age: 19 Year
  Sex: Female

DRUGS (3)
  1. DEPAKOTE [Concomitant]
  2. CYMBALTA [Concomitant]
  3. SAPHRIS [Suspect]
     Indication: HALLUCINATION
     Dosage: 5 MG; SL
     Route: 060

REACTIONS (2)
  - SUICIDE ATTEMPT [None]
  - OVERDOSE [None]
